FAERS Safety Report 9742109 (Version 1)
Quarter: 2013Q4

REPORT INFORMATION
  Report Type: Spontaneous
  Country: US (occurrence: US)
  Receive Date: 20131210
  Receipt Date: 20131210
  Transmission Date: 20140711
  Serious: No
  Sender: FDA-Public Use
  Company Number: US-ENDO PHARMACEUTICALS INC.-HCDA20120010

PATIENT
  Sex: Female

DRUGS (2)
  1. HYDROCODONE/ACETAMINOPHEN 10MG/500MG [Suspect]
     Indication: BACK PAIN
     Dosage: 20/1000 MG
     Route: 048
  2. OPANA ER 40MG [Concomitant]
     Indication: BACK PAIN
     Route: 048
     Dates: start: 2010, end: 20120205

REACTIONS (1)
  - Drug ineffective [Unknown]
